FAERS Safety Report 8790068 (Version 6)
Quarter: 2023Q1

REPORT INFORMATION
  Report Type: Spontaneous
  Country: US (occurrence: US)
  Receive Date: 20120917
  Receipt Date: 20230321
  Transmission Date: 20230417
  Serious: Yes (Other)
  Sender: FDA-Public Use
  Company Number: US-PFIZER INC-2012225961

PATIENT
  Age: 37 Year
  Sex: Male
  Weight: 68 kg

DRUGS (2)
  1. BENEFIX [Suspect]
     Active Substance: COAGULATION FACTOR IX RECOMBINANT HUMAN\ISOPROPYL ALCOHOL
     Indication: Haemorrhage prophylaxis
     Dosage: 119 IU, AS NEEDED
  2. BENEFIX [Suspect]
     Active Substance: COAGULATION FACTOR IX RECOMBINANT HUMAN\ISOPROPYL ALCOHOL
     Indication: Haemorrhage
     Dosage: 7000 I.U (+/-10% SLOW I.V. PUSH EVERY 12-24 HOURS AS NEEDED)
     Route: 042

REACTIONS (2)
  - Activated partial thromboplastin time abnormal [Unknown]
  - Illness [Unknown]

NARRATIVE: CASE EVENT DATE: 20120401
